FAERS Safety Report 25798162 (Version 1)
Quarter: 2025Q3

REPORT INFORMATION
  Report Type: Spontaneous
  Country: US (occurrence: US)
  Receive Date: 20250912
  Receipt Date: 20250912
  Transmission Date: 20251021
  Serious: Yes (Other)
  Sender: ABBVIE
  Company Number: US-ABBVIE-6457590

PATIENT
  Age: 78 Year
  Sex: Female

DRUGS (2)
  1. SYNTHROID [Suspect]
     Active Substance: LEVOTHYROXINE SODIUM
     Indication: Hypothyroidism
     Route: 048
     Dates: start: 2022, end: 20250601
  2. SYNTHROID [Suspect]
     Active Substance: LEVOTHYROXINE SODIUM
     Indication: Hypothyroidism
     Route: 048
     Dates: start: 202507

REACTIONS (14)
  - Knee arthroplasty [Recovered/Resolved]
  - Diabetes mellitus [Unknown]
  - Amnesia [Unknown]
  - Product dose omission in error [Unknown]
  - Thyroid disorder [Unknown]
  - Therapeutic product effect decreased [Unknown]
  - Gastrointestinal disorder [Unknown]
  - Nausea [Unknown]
  - Feeding disorder [Unknown]
  - Weight decreased [Unknown]
  - Joint injury [Unknown]
  - Fall [Unknown]
  - Skin wrinkling [Unknown]
  - Lid sulcus deepened [Unknown]

NARRATIVE: CASE EVENT DATE: 20250101
